FAERS Safety Report 8395099-4 (Version None)
Quarter: 2012Q2

REPORT INFORMATION
  Report Type: 
  Country: None (occurrence: None)
  Receive Date: 20120530
  Receipt Date: 20120521
  Transmission Date: 20120825
  Serious: Yes (Other)
  Sender: FDA-Public Use
  Company Number: CA-JNJFOC-20120517743

PATIENT
  Sex: Female

DRUGS (6)
  1. VITAMIN D [Concomitant]
     Dosage: 2 CAPSULES OF 400 MG EACH
     Route: 065
  2. IMURAN [Concomitant]
     Route: 065
  3. NAPROXEN [Concomitant]
     Route: 065
  4. REMICADE [Suspect]
     Indication: CROHN'S DISEASE
     Route: 042
     Dates: start: 20110511
  5. CALCIUM [Concomitant]
     Dosage: 2 TABLETS OF 500 MG EACH
     Route: 065
  6. SEASONALE [Concomitant]
     Route: 065

REACTIONS (1)
  - FIBROMYALGIA [None]
